FAERS Safety Report 5234193-3 (Version None)
Quarter: 2007Q1

REPORT INFORMATION
  Report Type: 
  Country: None (occurrence: None)
  Receive Date: 20070209
  Receipt Date: 20070131
  Transmission Date: 20070707
  Serious: Yes (Other)
  Sender: FDA-Public Use
  Company Number: GB-JNJFOC-20070105052

PATIENT
  Sex: Male

DRUGS (4)
  1. RISPERDAL [Suspect]
     Indication: SCHIZOPHRENIA
     Route: 048
  2. VALPROATE SODIUM [Concomitant]
     Indication: EPILEPSY
     Route: 065
  3. PRIMIDONE [Concomitant]
     Indication: EPILEPSY
     Route: 065
  4. PHENYTOIN [Concomitant]
     Indication: EPILEPSY
     Route: 065

REACTIONS (1)
  - COMPLEX PARTIAL SEIZURES [None]
